FAERS Safety Report 6177531-X (Version None)
Quarter: 2009Q2

REPORT INFORMATION
  Report Type: 
  Country: None (occurrence: None)
  Receive Date: 20090504
  Receipt Date: 20090422
  Transmission Date: 20091009
  Serious: Yes (Death)
  Sender: FDA-Public Use
  Company Number: DE-PFIZER INC-2008093108

PATIENT

DRUGS (4)
  1. ZELDOX [Suspect]
     Dates: start: 20050305, end: 20050406
  2. ZOPICLONE [Suspect]
     Dosage: TDD:7.5MG
     Dates: start: 20050211, end: 20050406
  3. REMERGIL [Suspect]
     Indication: BIPOLAR I DISORDER
     Dates: start: 20050206, end: 20050406
  4. PANTOZOL [Concomitant]
     Dates: start: 20050202, end: 20050406

REACTIONS (1)
  - COMPLETED SUICIDE [None]
